FAERS Safety Report 9343909 (Version 2)
Quarter: 2013Q2

REPORT INFORMATION
  Report Type: Spontaneous
  Country: US (occurrence: US)
  Receive Date: 20130612
  Receipt Date: 20130624
  Transmission Date: 20140414
  Serious: Yes (Other)
  Sender: FDA-Public Use
  Company Number: US-BAYER-2013-071966

PATIENT
  Age: 31 Year
  Sex: Female

DRUGS (3)
  1. YAZ [Suspect]
     Dosage: UNK
     Dates: start: 200904, end: 201106
  2. FLUTICASONE [Concomitant]
     Dosage: 50 ?G, UNK
     Route: 045
     Dates: start: 20110401
  3. AMOXICILLIN W/CLAVULANIC ACID [Concomitant]
     Dosage: 875/125 MG
     Route: 048
     Dates: start: 20110401

REACTIONS (7)
  - Deep vein thrombosis [None]
  - Injury [None]
  - Pain [None]
  - Emotional distress [None]
  - General physical health deterioration [None]
  - Anxiety [None]
  - Pain [None]
